FAERS Safety Report 6417505-4 (Version None)
Quarter: 2009Q4

REPORT INFORMATION
  Report Type: 
  Country: None (occurrence: None)
  Receive Date: 20091027
  Receipt Date: 20091027
  Transmission Date: 20100525
  Serious: Yes (Hospitalization)
  Sender: FDA-Public Use
  Company Number: None

PATIENT
  Sex: Female
  Weight: 61.8 kg

DRUGS (3)
  1. FLUOROURACIL [Suspect]
     Dosage: 1290 MG
  2. CISPLATIN [Suspect]
     Dosage: 129 MG
  3. ERBITUX [Suspect]
     Dosage: 1270 MG

REACTIONS (2)
  - DIARRHOEA [None]
  - HYPOKALAEMIA [None]
